FAERS Safety Report 9017517 (Version 1)
Quarter: 2013Q1

REPORT INFORMATION
  Report Type: Spontaneous
  Country: US (occurrence: US)
  Receive Date: 20130117
  Receipt Date: 20130117
  Transmission Date: 20140127
  Serious: Yes (Other)
  Sender: FDA-Public Use
  Company Number: US-MILLENNIUM PHARMACEUTICALS, INC.-2013-00252

PATIENT
  Sex: 0

DRUGS (2)
  1. VELCADE [Suspect]
     Indication: PLASMA CELL MYELOMA
  2. DOXIL                              /00330902/ [Concomitant]
     Indication: PRODUCT USED FOR UNKNOWN INDICATION

REACTIONS (7)
  - Haemorrhage [Unknown]
  - Gastric haemorrhage [Unknown]
  - Faeces hard [Unknown]
  - Faeces discoloured [Unknown]
  - Gastritis [Unknown]
  - Platelet count decreased [Unknown]
  - White blood cell count decreased [Unknown]
